FAERS Safety Report 9203714 (Version 1)
Quarter: 2013Q2

REPORT INFORMATION
  Report Type: Spontaneous
  Country: CA (occurrence: CA)
  Receive Date: 20130402
  Receipt Date: 20130403
  Transmission Date: 20140414
  Serious: Yes (Hospitalization, Other)
  Sender: FDA-Public Use
  Company Number: CA-SANOFI-AVENTIS-2013SA030962

PATIENT
  Age: 70 Year
  Sex: Female

DRUGS (7)
  1. ASPIRIN [Suspect]
     Indication: TRANSIENT ISCHAEMIC ATTACK
     Route: 065
  2. ASPIRIN [Suspect]
     Indication: TRANSIENT ISCHAEMIC ATTACK
     Route: 065
  3. HEPARIN [Suspect]
     Indication: TRANSIENT ISCHAEMIC ATTACK
     Dosage: DOSE:2000 UNIT(S)
     Route: 042
  4. HEPARIN [Suspect]
     Indication: TRANSIENT ISCHAEMIC ATTACK
     Dosage: 100 IU/KG FOR 7000 UNITS
     Route: 042
  5. HEPARIN [Suspect]
     Indication: TRANSIENT ISCHAEMIC ATTACK
     Dosage: 100 IU/KG FOR 7000 UNITS
     Route: 042
  6. CLOPIDOGREL BISULFATE [Suspect]
     Indication: TRANSIENT ISCHAEMIC ATTACK
     Route: 065
  7. CLOPIDOGREL BISULFATE [Suspect]
     Indication: TRANSIENT ISCHAEMIC ATTACK
     Route: 065

REACTIONS (8)
  - Heparin-induced thrombocytopenia [Recovered/Resolved]
  - Thrombosis in device [Recovered/Resolved]
  - Hemiparesis [Recovering/Resolving]
  - Hypoaesthesia [Recovered/Resolved]
  - Hypoaesthesia [Recovered/Resolved]
  - Transient ischaemic attack [Recovered/Resolved]
  - Drug ineffective [Unknown]
  - Infarction [Unknown]
